FAERS Safety Report 5521817-6 (Version None)
Quarter: 2007Q4

REPORT INFORMATION
  Report Type: 
  Country: None (occurrence: None)
  Receive Date: 20071120
  Receipt Date: 20071115
  Transmission Date: 20080405
  Serious: Yes (Death, Hospitalization)
  Sender: FDA-Public Use
  Company Number: CHWYE761631MAY07

PATIENT
  Age: 83 Year
  Sex: Male

DRUGS (2)
  1. EFFEXOR [Suspect]
     Indication: DEPRESSION SUICIDAL
     Dates: start: 20070425, end: 20070427
  2. EUTHYROX [Concomitant]
     Indication: HYPOTHYROIDISM
     Route: 048
     Dates: start: 20061110, end: 20070428

REACTIONS (7)
  - AORTIC ARTERIOSCLEROSIS [None]
  - ATRIAL THROMBOSIS [None]
  - BRONCHOPNEUMONIA [None]
  - COR PULMONALE [None]
  - HEPATIC CONGESTION [None]
  - PULMONARY EMBOLISM [None]
  - RENAL FAILURE ACUTE [None]
